FAERS Safety Report 5272836-9 (Version None)
Quarter: 2007Q1

REPORT INFORMATION
  Report Type: 
  Country: None (occurrence: None)
  Receive Date: 20070322
  Receipt Date: 20070314
  Transmission Date: 20070707
  Serious: Yes (Death)
  Sender: FDA-Public Use
  Company Number: KR-GILEAD-2007-0011459

PATIENT
  Sex: Male

DRUGS (2)
  1. ADEFOVIR DIPIVOXIL [Suspect]
     Indication: HEPATITIS B
     Route: 048
     Dates: start: 20060601, end: 20061107
  2. METRONIDAZOLE [Concomitant]
     Dates: start: 20050425, end: 20061125

REACTIONS (2)
  - COMA HEPATIC [None]
  - OESOPHAGEAL VARICES HAEMORRHAGE [None]
